FAERS Safety Report 4454491-0 (Version None)
Quarter: 2004Q3

REPORT INFORMATION
  Report Type: 
  Country: None (occurrence: None)
  Receive Date: 20040917
  Receipt Date: 20040917
  Transmission Date: 20050211
  Serious: No
  Sender: FDA-Public Use
  Company Number: None

PATIENT
  Sex: Female
  Weight: 38.2 kg

DRUGS (1)
  1. ORFADIN  2 MG, 5MG, 10 MG CAPSULES   RDT/SWEDISH ORPHAN INTERNATIONAL [Suspect]
     Indication: METABOLIC DISORDER
     Dosage: 17 MG BID ORAL
     Route: 048
     Dates: start: 20020626, end: 20040916

REACTIONS (4)
  - EYE REDNESS [None]
  - INFLAMMATION [None]
  - PAIN [None]
  - VISION BLURRED [None]
